FAERS Safety Report 20403824 (Version 1)
Quarter: 2022Q1

REPORT INFORMATION
  Report Type: Spontaneous
  Country: US (occurrence: None)
  Receive Date: 20220131
  Receipt Date: 20220131
  Transmission Date: 20220424
  Serious: Yes (Other)
  Sender: FDA-Public Use
  Company Number: US-Unichem Pharmaceuticals (USA) Inc-UCM202201-000041

PATIENT
  Sex: Male
  Weight: 95.25 kg

DRUGS (1)
  1. ATENOLOL [Suspect]
     Active Substance: ATENOLOL
     Indication: Tachycardia

REACTIONS (7)
  - Extrasystoles [Unknown]
  - Ventricular extrasystoles [Unknown]
  - Bradycardia [Unknown]
  - Chest pain [Unknown]
  - Tremor [Unknown]
  - Dizziness [Unknown]
  - Product use in unapproved indication [Unknown]
